FAERS Safety Report 8186754-X (Version None)
Quarter: 2012Q1

REPORT INFORMATION
  Report Type: 
  Country: None (occurrence: None)
  Receive Date: 20120306
  Receipt Date: 20120306
  Transmission Date: 20120608
  Serious: No
  Sender: FDA-Public Use
  Company Number: None

PATIENT
  Age: 73 Year
  Sex: Female
  Weight: 56.699 kg

DRUGS (2)
  1. CYMBALTA [Suspect]
     Indication: FIBROMYALGIA
     Dosage: 30 MG
     Dates: start: 20111005, end: 20120101
  2. CYMBALTA [Suspect]
     Indication: MYALGIA
     Dosage: 30 MG
     Dates: start: 20111005, end: 20120101

REACTIONS (8)
  - FATIGUE [None]
  - DIZZINESS [None]
  - NERVOUS SYSTEM DISORDER [None]
  - BLOOD PRESSURE INCREASED [None]
  - BALANCE DISORDER [None]
  - HEADACHE [None]
  - MYALGIA [None]
  - FIBROMYALGIA [None]
